FAERS Safety Report 8124407 (Version 2)
Quarter: 2014Q2

REPORT INFORMATION
  Report Type: Spontaneous
  Country: US (occurrence: US)
  Receive Date: 20110907
  Receipt Date: 20140630
  Transmission Date: 20141212
  Serious: Yes (Hospitalization)
  Sender: FDA-Public Use
  Company Number: US-GLAXOSMITHKLINE-A0885080A

PATIENT
  Sex: Female
  Weight: 70.5 kg

DRUGS (10)
  1. AVANDIA [Suspect]
     Indication: DIABETES MELLITUS
     Dosage: 8MG PER DAY
     Route: 048
     Dates: start: 200109, end: 201001
  2. METFORMIN [Concomitant]
  3. CARTIA XT [Concomitant]
  4. DIGOXIN [Concomitant]
  5. ENALAPRIL [Concomitant]
  6. LIPITOR [Concomitant]
  7. COUMADIN [Concomitant]
  8. EVISTA [Concomitant]
  9. HYDROCHLOROTHIAZIDE [Concomitant]
  10. MULTIVITAMIN [Concomitant]

REACTIONS (6)
  - Myocardial infarction [Not Recovered/Not Resolved]
  - Acute coronary syndrome [Unknown]
  - Cardiogenic shock [Unknown]
  - Atrial fibrillation [Unknown]
  - Cardiac failure congestive [Unknown]
  - Cardiac disorder [Unknown]
